FAERS Safety Report 15230487 (Version 2)
Quarter: 2018Q3

REPORT INFORMATION
  Report Type: Spontaneous
  Country: US (occurrence: US)
  Receive Date: 20180802
  Receipt Date: 20180814
  Transmission Date: 20181010
  Serious: Yes (Hospitalization)
  Sender: FDA-Public Use
  Company Number: US-TEVA-2018-US-934037

PATIENT
  Age: 45 Year
  Sex: Female

DRUGS (1)
  1. VALSARTAN. [Suspect]
     Active Substance: VALSARTAN
     Indication: HYPERTENSION
     Route: 065
     Dates: start: 201709, end: 201804

REACTIONS (4)
  - Thinking abnormal [Unknown]
  - Dizziness [Unknown]
  - Hypertension [Unknown]
  - Swollen tongue [Unknown]
